FAERS Safety Report 15357120 (Version 1)
Quarter: 2018Q3

REPORT INFORMATION
  Report Type: Spontaneous
  Country: US (occurrence: US)
  Receive Date: 20180830
  Receipt Date: 20180830
  Transmission Date: 20181010
  Serious: Yes (Death)
  Sender: FDA-Public Use
  Company Number: None

PATIENT
  Age: 54 Year
  Weight: 69.17 kg

DRUGS (13)
  1. CARVEDILOL. [Concomitant]
     Active Substance: CARVEDILOL
  2. CYANOCOBAL [Concomitant]
  3. GLUCOSAMINE/CHONDROITIN [Concomitant]
  4. NICOTINE. [Concomitant]
     Active Substance: NICOTINE
  5. ONDANSETRO [Concomitant]
  6. LIPASE/PROTEASE/AMYLASE [Concomitant]
  7. MESALAMINE. [Concomitant]
     Active Substance: MESALAMINE
  8. ZEPATIER [Suspect]
     Active Substance: ELBASVIR\GRAZOPREVIR
     Indication: HEPATITIS C
     Route: 048
     Dates: start: 20180129, end: 20180326
  9. ASCORBIC ACID. [Concomitant]
     Active Substance: ASCORBIC ACID
  10. CITALOPRAM [Concomitant]
     Active Substance: CITALOPRAM HYDROBROMIDE
  11. CLONAZEPAM. [Concomitant]
     Active Substance: CLONAZEPAM
  12. OMEPRAZOLE. [Concomitant]
     Active Substance: OMEPRAZOLE
  13. TAMSULOSIN [Concomitant]
     Active Substance: TAMSULOSIN

REACTIONS (1)
  - Toxicity to various agents [None]

NARRATIVE: CASE EVENT DATE: 20180326
